FAERS Safety Report 4342407-7 (Version None)
Quarter: 2004Q2

REPORT INFORMATION
  Report Type: 
  Country: None (occurrence: None)
  Receive Date: 20040421
  Receipt Date: 20040217
  Transmission Date: 20050107
  Serious: No
  Sender: FDA-Public Use
  Company Number: US-BRISTOL-MYERS SQUIBB COMPANY-12509824

PATIENT
  Age: 50 Year
  Sex: Male
  Weight: 96 kg

DRUGS (6)
  1. METAGLIP [Suspect]
     Indication: DIABETES MELLITUS
     Dosage: DOSAGE FORM = TABLET (5MG/500MG PER TABLET)  DURATION OF THERAPY = SEVERAL YEARS
     Route: 048
  2. LIPITOR [Concomitant]
  3. ACTOS [Concomitant]
  4. SYNTHROID [Concomitant]
  5. ALLOPURINOL [Concomitant]
  6. LISINOPRIL [Concomitant]

REACTIONS (1)
  - BLOOD GLUCOSE INCREASED [None]
